FAERS Safety Report 24524322 (Version 1)
Quarter: 2024Q4

REPORT INFORMATION
  Report Type: Spontaneous
  Country: JP (occurrence: JP)
  Receive Date: 20241018
  Receipt Date: 20241018
  Transmission Date: 20250114
  Serious: Yes (Other)
  Sender: MALLINCKRODT
  Company Number: JP-MALLINCKRODT-MNK202406276

PATIENT
  Age: 87 Year
  Sex: Female
  Weight: 40 kg

DRUGS (6)
  1. NITRIC OXIDE [Suspect]
     Active Substance: NITRIC OXIDE
     Indication: Pulmonary hypertension
     Dosage: 20 PPM
     Route: 055
  2. NITRIC OXIDE [Suspect]
     Active Substance: NITRIC OXIDE
     Dosage: 10 PPM
     Route: 055
  3. MILRINONE [Concomitant]
     Active Substance: MILRINONE
     Dosage: 0.2 GAMMA
  4. DOBUTAMINE [Concomitant]
     Active Substance: DOBUTAMINE HYDROCHLORIDE
     Dosage: 8 GAMMA
  5. DOBUTAMINE [Concomitant]
     Active Substance: DOBUTAMINE HYDROCHLORIDE
     Dosage: 1.3 GAMMA
  6. NOREPINEPHRINE [Concomitant]
     Active Substance: NOREPINEPHRINE\NOREPINEPHRINE BITARTRATE
     Dosage: UNKNOWN

REACTIONS (2)
  - Peripheral artery thrombosis [Recovered/Resolved]
  - Aortic thrombosis [Recovered/Resolved]
